FAERS Safety Report 4679416-4 (Version None)
Quarter: 2005Q2

REPORT INFORMATION
  Report Type: 
  Country: None (occurrence: None)
  Receive Date: 20050602
  Receipt Date: 20050525
  Transmission Date: 20051028
  Serious: Yes (Other)
  Sender: FDA-Public Use
  Company Number: 2005UW08090

PATIENT
  Age: 74 Year
  Sex: Male
  Weight: 76.2 kg

DRUGS (6)
  1. CRESTOR [Suspect]
     Indication: BLOOD CHOLESTEROL INCREASED
     Route: 048
     Dates: start: 20031101
  2. WARFARIN SODIUM [Concomitant]
  3. ATENOLOL [Concomitant]
  4. FLOMAX [Concomitant]
  5. VERAPAMIL [Concomitant]
  6. DIAZEPAM [Concomitant]

REACTIONS (2)
  - ATRIAL FIBRILLATION [None]
  - HEART RATE INCREASED [None]
